FAERS Safety Report 6814439-8 (Version None)
Quarter: 2010Q3

REPORT INFORMATION
  Report Type: 
  Country: None (occurrence: None)
  Receive Date: 20100702
  Receipt Date: 20100621
  Transmission Date: 20110219
  Serious: Yes (Other)
  Sender: FDA-Public Use
  Company Number: PHHY2010US17890

PATIENT
  Sex: Female

DRUGS (8)
  1. RECLAST [Suspect]
     Indication: OSTEOPOROSIS
     Dosage: UNK,UNK
     Dates: start: 20100308
  2. CALCIUM CARBONATE W/COLECALCIFEROL [Suspect]
     Route: 048
  3. ATENOLOL [Concomitant]
     Indication: HYPERTENSION
     Dosage: 2.5 MG, UNK
  4. METHIMAZOLE [Concomitant]
     Dosage: 5 MG UNK
  5. ARICEPT [Concomitant]
  6. METANX [Concomitant]
  7. XALATAN [Concomitant]
  8. DIGOXIN [Concomitant]
     Indication: HYPERTENSION
     Dosage: UNK
     Route: 048
     Dates: start: 20070101

REACTIONS (9)
  - ASTHENIA [None]
  - CONFUSIONAL STATE [None]
  - FALL [None]
  - HYPOAESTHESIA [None]
  - MEMORY IMPAIRMENT [None]
  - MOVEMENT DISORDER [None]
  - OEDEMA PERIPHERAL [None]
  - PAIN [None]
  - POVERTY OF SPEECH [None]
